FAERS Safety Report 8284730-X (Version None)
Quarter: 2012Q2

REPORT INFORMATION
  Report Type: 
  Country: None (occurrence: None)
  Receive Date: 20120413
  Receipt Date: 20110317
  Transmission Date: 20120825
  Serious: No
  Sender: FDA-Public Use
  Company Number: US-ASTRAZENECA-2011SE15274

PATIENT
  Age: 74 Year
  Sex: Female

DRUGS (6)
  1. METFORMIN HCL [Concomitant]
  2. LISINOPRIL [Concomitant]
  3. MULTI-VITAMINS [Concomitant]
  4. ZYRTEC [Concomitant]
  5. LIPITOR [Concomitant]
  6. NEXIUM [Suspect]
     Indication: GASTROOESOPHAGEAL REFLUX DISEASE
     Route: 048

REACTIONS (2)
  - HIATUS HERNIA [None]
  - ABDOMINAL PAIN UPPER [None]
